FAERS Safety Report 8509165-3 (Version None)
Quarter: 2012Q3

REPORT INFORMATION
  Report Type: 
  Country: None (occurrence: None)
  Receive Date: 20120713
  Receipt Date: 20120711
  Transmission Date: 20120928
  Serious: Yes (Hospitalization)
  Sender: FDA-Public Use
  Company Number: GB-GLAXOSMITHKLINE-Z0008172B

PATIENT
  Sex: Male
  Weight: 79.2 kg

DRUGS (16)
  1. BENDROFLUMETHIAZIDE [Concomitant]
     Indication: HYPERTENSION
     Dosage: 2.5MG PER DAY
     Route: 048
     Dates: start: 20000101
  2. DOXAZOSIN MESYLATE [Concomitant]
     Indication: HYPERTENSION
     Dosage: 8MG PER DAY
     Route: 048
     Dates: start: 20090101
  3. LOPERAMIDE [Concomitant]
     Indication: DIARRHOEA
     Dosage: 2TAB AS REQUIRED
     Route: 048
     Dates: start: 20100601
  4. SUNITINIB MALATE [Suspect]
     Indication: RENAL CELL CARCINOMA
     Dosage: 50MG PER DAY
     Route: 048
     Dates: start: 20110412
  5. DALTEPARIN SODIUM [Concomitant]
     Indication: COAGULOPATHY
     Dosage: 5000IU PER DAY
     Route: 058
     Dates: start: 20110204, end: 20110216
  6. PAZOPANIB [Suspect]
     Indication: RENAL CELL CARCINOMA
     Route: 048
     Dates: start: 20101006
  7. DILTIAZEM [Concomitant]
     Indication: HYPERTENSION
     Dosage: 240MG PER DAY
     Route: 048
     Dates: start: 20110505, end: 20110509
  8. MELOXICAM [Concomitant]
     Indication: OSTEOARTHRITIS
     Dosage: 7.5MG PER DAY
  9. ZOPICLONE [Concomitant]
     Indication: INSOMNIA
     Dosage: 3.75MG PER DAY
     Route: 048
     Dates: start: 20100601
  10. CREON [Concomitant]
     Indication: PANCREATIC INSUFFICIENCY
     Dosage: 2CAP AS REQUIRED
     Route: 048
     Dates: start: 20100921
  11. ATORVASTATIN [Concomitant]
     Indication: BLOOD CHOLESTEROL INCREASED
     Dosage: 10MG PER DAY
     Route: 048
     Dates: start: 20110208
  12. CREON [Concomitant]
     Dosage: 25000IU SINGLE DOSE
     Route: 048
     Dates: start: 20100921, end: 20100921
  13. CIPROFLOXACIN [Concomitant]
     Indication: INFECTION
     Dosage: 500MG PER DAY
     Route: 048
     Dates: start: 20110506, end: 20110508
  14. DALTEPARIN SODIUM [Concomitant]
  15. MOVIPREP [Concomitant]
     Indication: CONSTIPATION
     Dosage: 2 PER DAY
     Route: 048
     Dates: start: 20110104, end: 20110111
  16. NYSTATIN [Concomitant]
     Indication: FUNGAL INFECTION
     Dosage: 100000IU FOUR TIMES PER DAY
     Route: 061
     Dates: start: 20110108, end: 20110111

REACTIONS (2)
  - PANCYTOPENIA [None]
  - FATIGUE [None]
